FAERS Safety Report 16801663 (Version 5)
Quarter: 2022Q2

REPORT INFORMATION
  Report Type: Spontaneous
  Country: US (occurrence: US)
  Receive Date: 20190912
  Receipt Date: 20220502
  Transmission Date: 20220721
  Serious: No
  Sender: FDA-Public Use
  Company Number: US-PFIZER INC-2019396081

PATIENT
  Age: 52 Year
  Sex: Female

DRUGS (4)
  1. LYRICA [Suspect]
     Active Substance: PREGABALIN
     Dosage: 100 MG
     Route: 048
  2. LYRICA [Suspect]
     Active Substance: PREGABALIN
     Dosage: 200 MG, 3X/DAY (TAKE 2 CAPSULES BY MOUTH 3XDAY
     Route: 048
  3. LYRICA [Suspect]
     Active Substance: PREGABALIN
     Dosage: 100 MG, THREE TIMES A DAY
  4. LYRICA [Suspect]
     Active Substance: PREGABALIN
     Dosage: UNK, 4X/DAY (AS NEEDED)

REACTIONS (7)
  - Product prescribing error [Unknown]
  - Intentional product use issue [Unknown]
  - Pain [Unknown]
  - Oral pain [Unknown]
  - Malaise [Unknown]
  - Nausea [Unknown]
  - Memory impairment [Unknown]
